FAERS Safety Report 12037342 (Version 2)
Quarter: 2016Q2

REPORT INFORMATION
  Report Type: Spontaneous
  Country: KR (occurrence: KR)
  Receive Date: 20160208
  Receipt Date: 20160411
  Transmission Date: 20160815
  Serious: Yes (Life-Threatening, Hospitalization, Other)
  Sender: FDA-Public Use
  Company Number: KR-ACCORD-037623

PATIENT
  Age: 55 Year
  Sex: Male

DRUGS (2)
  1. CISPLATIN. [Suspect]
     Active Substance: CISPLATIN
     Indication: TRANSITIONAL CELL CARCINOMA
     Dosage: FOUR CYCLES
  2. GEMCITABINE/GEMCITABINE HYDROCHLORIDE [Suspect]
     Active Substance: GEMCITABINE\GEMCITABINE HYDROCHLORIDE
     Indication: TRANSITIONAL CELL CARCINOMA
     Dosage: CUMULATIVE DOSE OF GEMCITABINE WAS 18354 MG

REACTIONS (7)
  - Drug ineffective [Unknown]
  - Thrombotic microangiopathy [Unknown]
  - Malignant neoplasm progression [None]
  - Renal failure [None]
  - Transitional cell carcinoma [None]
  - Weight increased [None]
  - Microangiopathic haemolytic anaemia [None]
